FAERS Safety Report 9774229 (Version 2)
Quarter: 2016Q2

REPORT INFORMATION
  Report Type: Report from Study
  Country: BR (occurrence: BR)
  Receive Date: 20131220
  Receipt Date: 20160413
  Transmission Date: 20160815
  Serious: Yes (Hospitalization)
  Sender: FDA-Public Use
  Company Number: BR-ROCHE-1320190

PATIENT
  Age: 71 Year
  Sex: Female
  Weight: 57 kg

DRUGS (5)
  1. DIPROSPAN [Suspect]
     Active Substance: BETAMETHASONE DIPROPIONATE\BETAMETHASONE SODIUM PHOSPHATE
     Indication: PRURITUS
     Route: 065
  2. PREDNISONE. [Concomitant]
     Active Substance: PREDNISONE
     Route: 065
  3. ACTEMRA [Suspect]
     Active Substance: TOCILIZUMAB
     Indication: RHEUMATOID ARTHRITIS
     Route: 042
     Dates: start: 20151201
  4. ENALAPRIL MALEATE. [Concomitant]
     Active Substance: ENALAPRIL MALEATE
     Route: 065
  5. REUQUINOL [Concomitant]
     Active Substance: HYDROXYCHLOROQUINE SULFATE
     Route: 065

REACTIONS (6)
  - Haemorrhage [Recovered/Resolved]
  - Hypersensitivity [Unknown]
  - Swelling [Unknown]
  - Pruritus [Recovered/Resolved]
  - Ill-defined disorder [Unknown]
  - Skin injury [Recovered/Resolved]

NARRATIVE: CASE EVENT DATE: 20160215
